FAERS Safety Report 19728367 (Version 1)
Quarter: 2021Q3

REPORT INFORMATION
  Report Type: Spontaneous
  Country: US (occurrence: US)
  Receive Date: 20210820
  Receipt Date: 20210820
  Transmission Date: 20211014
  Serious: No
  Sender: FDA-Public Use
  Company Number: US-ASTRAZENECA-2021A646773

PATIENT
  Age: 63 Year
  Sex: Female
  Weight: 53.5 kg

DRUGS (4)
  1. BUDESONIDE AND FORMOTEROL [Suspect]
     Active Substance: BUDESONIDE\FORMOTEROL
     Indication: CHRONIC OBSTRUCTIVE PULMONARY DISEASE
     Dosage: 2 PUFFS TWO TIMES A DAY
     Route: 055
  2. STELLARA [Concomitant]
     Indication: PSORIASIS
  3. ALBUTEROL. [Concomitant]
     Active Substance: ALBUTEROL
  4. SPIRIVA [Concomitant]
     Active Substance: TIOTROPIUM BROMIDE MONOHYDRATE
     Indication: CHRONIC OBSTRUCTIVE PULMONARY DISEASE
     Dosage: 2 PUFFS DAILY

REACTIONS (3)
  - Concussion [Not Recovered/Not Resolved]
  - Headache [Not Recovered/Not Resolved]
  - Wrong technique in device usage process [Unknown]

NARRATIVE: CASE EVENT DATE: 2021
